FAERS Safety Report 5017928-4 (Version None)
Quarter: 2006Q2

REPORT INFORMATION
  Report Type: 
  Country: None (occurrence: None)
  Receive Date: 20060602
  Receipt Date: 20060602
  Transmission Date: 20061013
  Serious: Yes (Life-Threatening, Hospitalization)
  Sender: FDA-Public Use
  Company Number: None

PATIENT
  Age: 59 Year
  Sex: Male
  Weight: 139.7079 kg

DRUGS (12)
  1. QUININE SULFATE [Suspect]
     Indication: MUSCLE SPASMS
     Dosage: 325 MG QHS PRN PO
     Route: 048
     Dates: start: 20060505, end: 20060520
  2. ORPHENADRINE SULFATE [Concomitant]
  3. GLUCAPHAGE [Concomitant]
  4. HYDROCHLOROTHIAZIDE 25MG/TRIAMTERENE [Concomitant]
  5. PROZAC [Concomitant]
  6. TRICOR [Concomitant]
  7. MORPHINE SULFATE [Concomitant]
  8. PROVIGIL [Concomitant]
  9. CRESTOR [Concomitant]
  10. FLOMAX [Concomitant]
  11. ASPIRIN [Concomitant]
  12. FLEXERIL [Concomitant]

REACTIONS (7)
  - AUTOIMMUNE THROMBOCYTOPENIA [None]
  - BODY TEMPERATURE INCREASED [None]
  - DIZZINESS [None]
  - FALL [None]
  - HEAD INJURY [None]
  - HEADACHE [None]
  - SYNCOPE [None]
